FAERS Safety Report 20205947 (Version 1)
Quarter: 2021Q4

REPORT INFORMATION
  Report Type: Spontaneous
  Country: US (occurrence: None)
  Receive Date: 20211217
  Receipt Date: 20211217
  Transmission Date: 20220303
  Serious: Yes (Life-Threatening, Hospitalization, Disabling, Other)
  Sender: FDA-Public Use
  Company Number: None

PATIENT
  Age: 62 Year
  Sex: Female
  Weight: 65.1 kg

DRUGS (8)
  1. CASIRIVIMAB\IMDEVIMAB [Suspect]
     Active Substance: CASIRIVIMAB\IMDEVIMAB
     Indication: COVID-19
     Dosage: OTHER FREQUENCY : ONCE;?
     Route: 042
     Dates: start: 20211212, end: 20211212
  2. AZITHROMYCIN [Concomitant]
     Active Substance: AZITHROMYCIN
     Dates: start: 20211212, end: 20211213
  3. CEFTRIAXONE [Concomitant]
     Active Substance: CEFTRIAXONE
     Dates: start: 20211212, end: 20211213
  4. heparin 5000 units SQ [Concomitant]
     Dates: start: 20211212, end: 20211212
  5. LACTATED RINGERS SOLUTION [Concomitant]
     Active Substance: CALCIUM CHLORIDE\POTASSIUM CHLORIDE\SODIUM CHLORIDE\SODIUM LACTATE
     Dates: start: 20211212, end: 20211212
  6. METOPROLOL [Concomitant]
     Active Substance: METOPROLOL
     Dates: end: 20211214
  7. PRAVASTATIN [Concomitant]
     Active Substance: PRAVASTATIN
  8. SODIUM BICARBONATE [Concomitant]
     Active Substance: SODIUM BICARBONATE

REACTIONS (3)
  - Subdural haematoma [None]
  - Brain herniation [None]
  - Unresponsive to stimuli [None]

NARRATIVE: CASE EVENT DATE: 20211213
